FAERS Safety Report 5035632-3 (Version None)
Quarter: 2006Q2

REPORT INFORMATION
  Report Type: 
  Country: None (occurrence: None)
  Receive Date: 20060627
  Receipt Date: 20060619
  Transmission Date: 20061013
  Serious: Yes (Hospitalization)
  Sender: FDA-Public Use
  Company Number: 2006-0098

PATIENT
  Age: 78 Year
  Sex: Female
  Weight: 58 kg

DRUGS (9)
  1. RANIPLEX [Suspect]
     Dosage: 1UNIT CYCLIC
     Route: 042
     Dates: start: 20060426
  2. TAXOL [Suspect]
     Dosage: 260MG PER DAY
     Route: 042
     Dates: start: 20060426
  3. CIFLOX [Suspect]
     Dosage: 800MG PER DAY
     Route: 042
     Dates: start: 20060506, end: 20060516
  4. CARBOPLATIN [Suspect]
     Dosage: 400MG PER DAY
     Route: 042
     Dates: start: 20060426
  5. ROCEPHIN [Suspect]
     Dosage: 2MG PER DAY
     Route: 042
     Dates: start: 20060506, end: 20060516
  6. ZOPHREN [Concomitant]
     Dosage: 1AMP PER DAY
     Route: 065
     Dates: start: 20060401
  7. SOLU-MEDROL [Concomitant]
     Dosage: 120MG PER DAY
     Route: 065
     Dates: start: 20060401
  8. POLARAMINE [Concomitant]
     Dosage: 1AMP PER DAY
     Route: 065
     Dates: start: 20060401
  9. PRIMPERAN TAB [Concomitant]
     Dosage: 1AMP PER DAY
     Route: 065
     Dates: start: 20060401

REACTIONS (7)
  - CONJUNCTIVITIS [None]
  - DERMATITIS EXFOLIATIVE [None]
  - DRUG HYPERSENSITIVITY [None]
  - FEBRILE BONE MARROW APLASIA [None]
  - ORAL SOFT TISSUE DISORDER [None]
  - PRURIGO [None]
  - PURPURA [None]
